FAERS Safety Report 5218810-X (Version None)
Quarter: 2007Q1

REPORT INFORMATION
  Report Type: 
  Country: None (occurrence: None)
  Receive Date: 20070122
  Receipt Date: 20070122
  Transmission Date: 20070707
  Serious: Yes (Hospitalization)
  Sender: FDA-Public Use
  Company Number: None

PATIENT
  Age: 80 Year
  Sex: Male
  Weight: 73.0291 kg

DRUGS (2)
  1. VALSARTAN [Suspect]
     Dosage: 80 MG  DAILY  PO
     Route: 048
     Dates: start: 20061122, end: 20061201
  2. ALFUZOSIN [Suspect]
     Dosage: 10 MG  QHS  PO
     Route: 048

REACTIONS (4)
  - ASTHENIA [None]
  - HYPERKALAEMIA [None]
  - HYPOTENSION [None]
  - HYPOVOLAEMIA [None]
